FAERS Safety Report 25163958 (Version 1)
Quarter: 2025Q2

REPORT INFORMATION
  Report Type: Spontaneous
  Country: US (occurrence: US)
  Receive Date: 20250405
  Receipt Date: 20250405
  Transmission Date: 20250717
  Serious: Yes (Hospitalization)
  Sender: NOVITIUM PHARMA
  Company Number: US-NOVITIUMPHARMA-2025USNVP00822

PATIENT
  Age: 59 Year
  Sex: Female

DRUGS (7)
  1. PREDNISONE [Suspect]
     Active Substance: PREDNISONE
     Indication: Pericarditis
  2. PREDNISONE [Suspect]
     Active Substance: PREDNISONE
  3. IBUPROFEN [Concomitant]
     Active Substance: IBUPROFEN
     Indication: Pericarditis
  4. COLCHICINE [Concomitant]
     Active Substance: COLCHICINE
     Indication: Pericarditis
  5. AZATHIOPRINE [Concomitant]
     Active Substance: AZATHIOPRINE
     Indication: Pericarditis
  6. ANAKINRA [Concomitant]
     Active Substance: ANAKINRA
     Indication: Pericarditis
  7. RILONACEPT [Concomitant]
     Active Substance: RILONACEPT
     Indication: Product used for unknown indication

REACTIONS (1)
  - Rebound effect [Unknown]
